FAERS Safety Report 20949001 (Version 5)
Quarter: 2022Q3

REPORT INFORMATION
  Report Type: Spontaneous
  Country: JP (occurrence: JP)
  Receive Date: 20220613
  Receipt Date: 20220815
  Transmission Date: 20221027
  Serious: Yes (Other)
  Sender: FDA-Public Use
  Company Number: JP-UCBJ-CD202204995UCBPHAPROD

PATIENT
  Age: 6 Year
  Sex: Male
  Weight: 40 kg

DRUGS (1)
  1. VIMPAT [Suspect]
     Active Substance: LACOSAMIDE
     Indication: Epilepsy
     Dosage: 2.5 MG/KG (MILLIGRAM PER KILOGRAM)
     Route: 048
     Dates: start: 20210421

REACTIONS (2)
  - Obesity [Unknown]
  - Pituitary tumour benign [Unknown]

NARRATIVE: CASE EVENT DATE: 20210427
